FAERS Safety Report 12217372 (Version 1)
Quarter: 2016Q1

REPORT INFORMATION
  Report Type: Spontaneous
  Country: US (occurrence: None)
  Receive Date: 20160328
  Receipt Date: 20160328
  Transmission Date: 20160526
  Serious: No
  Sender: FDA-Public Use
  Company Number: None

PATIENT
  Age: 25 Year
  Sex: Female

DRUGS (1)
  1. STELARA [Suspect]
     Active Substance: USTEKINUMAB
     Indication: PRODUCT USED FOR UNKNOWN INDICATION
     Dosage: 45MG/0.5ML EVERY 12 WEEKS SUBCUTANEOUSLY
     Route: 058
     Dates: start: 20160215

REACTIONS (2)
  - Incorrect dose administered [None]
  - Device leakage [None]

NARRATIVE: CASE EVENT DATE: 20160323
